FAERS Safety Report 20224331 (Version 1)
Quarter: 2021Q4

REPORT INFORMATION
  Report Type: Spontaneous
  Country: US (occurrence: US)
  Receive Date: 20211223
  Receipt Date: 20211223
  Transmission Date: 20220303
  Serious: Yes (Other)
  Sender: FDA-Public Use
  Company Number: US-TEVA-2021-US-1976214

PATIENT
  Sex: Female

DRUGS (2)
  1. COPAXONE [Suspect]
     Active Substance: GLATIRAMER ACETATE
     Dosage: FORM STRENGTH: UNKNOWN
     Route: 065
  2. GLATIRAMER ACETATE [Suspect]
     Active Substance: GLATIRAMER ACETATE
     Route: 065

REACTIONS (11)
  - Cataract [Unknown]
  - Fatigue [Unknown]
  - Confusional state [Unknown]
  - Dysarthria [Unknown]
  - Headache [Unknown]
  - Mood swings [Unknown]
  - Pain [Unknown]
  - Hypersensitivity [Unknown]
  - Withdrawal syndrome [Unknown]
  - Throat tightness [Unknown]
  - Inability to afford medication [Unknown]
